FAERS Safety Report 9494687 (Version 1)
Quarter: 2013Q3

REPORT INFORMATION
  Report Type: Spontaneous
  Country: US (occurrence: None)
  Receive Date: 20130830
  Receipt Date: 20130830
  Transmission Date: 20140515
  Serious: No
  Sender: FDA-Public Use
  Company Number: None

PATIENT
  Age: 45 Year
  Sex: Female
  Weight: 61.24 kg

DRUGS (1)
  1. CELEBREX 10 MG UNKNOWN [Suspect]
     Indication: ARTHRITIS
     Dosage: ONE DAILY  ONCE DAILY  TAKEN BY  MOUTH
     Route: 048
     Dates: start: 20070810, end: 20071103

REACTIONS (2)
  - Urinary retention [None]
  - Blood urine present [None]
